FAERS Safety Report 22689089 (Version 6)
Quarter: 2023Q4

REPORT INFORMATION
  Report Type: Spontaneous
  Country: PT (occurrence: PT)
  Receive Date: 20230710
  Receipt Date: 20231015
  Transmission Date: 20240110
  Serious: Yes (Life-Threatening, Other)
  Sender: FDA-Public Use
  Company Number: PT-JNJFOC-20230708438

PATIENT
  Age: 18 Year
  Sex: Female
  Weight: 59 kg

DRUGS (4)
  1. REMICADE [Suspect]
     Active Substance: INFLIXIMAB
     Indication: Adenosine deaminase 2 deficiency
     Dosage: UNK
     Route: 042
     Dates: start: 20221003
  2. REMICADE [Suspect]
     Active Substance: INFLIXIMAB
     Dosage: UNK
     Route: 042
     Dates: start: 20220706
  3. REMICADE [Suspect]
     Active Substance: INFLIXIMAB
     Dosage: UNK
     Route: 065
     Dates: start: 20220822
  4. REMICADE [Suspect]
     Active Substance: INFLIXIMAB
     Dosage: UNK
     Route: 065
     Dates: start: 20220706, end: 20221010

REACTIONS (10)
  - Cutaneous vasculitis [Unknown]
  - Myopericarditis [Unknown]
  - Neutropenia [Unknown]
  - Peripheral ischaemia [Recovered/Resolved]
  - Cardiac disorder [Recovered/Resolved]
  - Myopathy [Recovered/Resolved]
  - Lymphoedema [Recovered/Resolved]
  - Pericarditis [Recovered/Resolved]
  - Off label use [Unknown]
  - Intentional product use issue [Unknown]
